FAERS Safety Report 20392067 (Version 1)
Quarter: 2022Q1

REPORT INFORMATION
  Report Type: Report from Study
  Country: EG (occurrence: EG)
  Receive Date: 20220128
  Receipt Date: 20220128
  Transmission Date: 20220423
  Serious: Yes (Other)
  Sender: FDA-Public Use
  Company Number: EG-GRUNENTHAL-2021-101330

PATIENT

DRUGS (1)
  1. TRAMADOL HYDROCHLORIDE [Suspect]
     Active Substance: TRAMADOL HYDROCHLORIDE
     Indication: Product used for unknown indication
     Dosage: UNK
     Route: 065

REACTIONS (11)
  - Drug dependence [Unknown]
  - Major depression [Unknown]
  - Cognitive disorder [Unknown]
  - Disturbance in attention [Unknown]
  - Memory impairment [Unknown]
  - Antisocial personality disorder [Unknown]
  - Borderline personality disorder [Unknown]
  - Visual impairment [Unknown]
  - Neuropsychological test abnormal [Unknown]
  - Hyporesponsive to stimuli [Unknown]
  - Visual impairment [Unknown]
